FAERS Safety Report 7304162-8 (Version None)
Quarter: 2011Q1

REPORT INFORMATION
  Report Type: 
  Country: None (occurrence: None)
  Receive Date: 20110221
  Receipt Date: 20110207
  Transmission Date: 20110831
  Serious: Yes (Other)
  Sender: FDA-Public Use
  Company Number: US-BAYER-201022985NA

PATIENT
  Sex: Female
  Weight: 77.098 kg

DRUGS (11)
  1. ZYRTEC [Concomitant]
     Dosage: 10 MG, QD
  2. SPORANOX [Concomitant]
     Dosage: 400 MG, BID
  3. OCELLA [Suspect]
     Indication: PRODUCT USED FOR UNKNOWN INDICATION
  4. ZOLOFT [Concomitant]
     Dosage: 100 MG, QD
  5. YAZ [Suspect]
     Indication: PRODUCT USED FOR UNKNOWN INDICATION
  6. ANAPROX DS [Concomitant]
     Dosage: 550 MG, BID
  7. ALLEGRA [Concomitant]
     Dosage: 180 MG, QD
  8. PROVERA [Concomitant]
     Dosage: 10 MG, QD
  9. LIDEX [Concomitant]
     Dosage: 0.5 %, UNK
  10. TAGAMET [Concomitant]
     Dosage: 400 MG, QD
  11. YASMIN [Suspect]
     Indication: PRODUCT USED FOR UNKNOWN INDICATION
     Route: 048
     Dates: start: 20040901

REACTIONS (5)
  - CHOLELITHIASIS [None]
  - ABDOMINAL PAIN UPPER [None]
  - CHOLECYSTITIS CHRONIC [None]
  - ABDOMINAL PAIN [None]
  - HYPERLIPIDAEMIA [None]
